FAERS Safety Report 5940178-1 (Version None)
Quarter: 2008Q4

REPORT INFORMATION
  Report Type: 
  Country: None (occurrence: None)
  Receive Date: 20081104
  Receipt Date: 20081027
  Transmission Date: 20090506
  Serious: Yes (Hospitalization)
  Sender: FDA-Public Use
  Company Number: PHHO2008FR12811

PATIENT
  Sex: Female
  Weight: 48.5 kg

DRUGS (3)
  1. ERL 080A ERL+TAB [Suspect]
     Indication: RENAL TRANSPLANT
     Dosage: 1440 MG, DAILY
     Dates: start: 20080420
  2. CORTICOSTEROIDS [Concomitant]
     Indication: RENAL TRANSPLANT
     Dosage: 10 MG, DAILY
     Route: 048
  3. FOSFOMYCIN [Concomitant]
     Indication: PYELONEPHRITIS CHRONIC

REACTIONS (3)
  - HYPOKALAEMIA [None]
  - METABOLIC ALKALOSIS [None]
  - OEDEMA PERIPHERAL [None]
